FAERS Safety Report 7786529-7 (Version None)
Quarter: 2011Q3

REPORT INFORMATION
  Report Type: 
  Country: None (occurrence: None)
  Receive Date: 20110929
  Receipt Date: 20110923
  Transmission Date: 20111222
  Serious: Yes (Other)
  Sender: FDA-Public Use
  Company Number: US-GLAXOSMITHKLINE-A0945807A

PATIENT
  Age: 15 Year
  Sex: Female

DRUGS (5)
  1. DIFFERIN [Concomitant]
  2. LAMOTRIGINE [Suspect]
     Indication: AFFECTIVE DISORDER
     Dosage: 100MG PER DAY
     Route: 048
     Dates: start: 20100501, end: 20110916
  3. FOCALIN [Concomitant]
  4. GEODON [Concomitant]
  5. MONOCYCLINE [Concomitant]

REACTIONS (7)
  - RASH [None]
  - SKIN DISCOLOURATION [None]
  - ACNE [None]
  - RASH PAPULAR [None]
  - INCREASED TENDENCY TO BRUISE [None]
  - HAEMORRHAGE [None]
  - FACIAL PAIN [None]
